FAERS Safety Report 15285364 (Version 1)
Quarter: 2018Q3

REPORT INFORMATION
  Report Type: Spontaneous
  Country: US (occurrence: US)
  Receive Date: 20180816
  Receipt Date: 20180816
  Transmission Date: 20181010
  Serious: Yes (Other)
  Sender: FDA-Public Use
  Company Number: US-IMPAX LABORATORIES, INC-2018-IPXL-02655

PATIENT
  Age: 76 Year
  Sex: Male
  Weight: 73 kg

DRUGS (15)
  1. ROPINIROLE. [Concomitant]
     Active Substance: ROPINIROLE
     Indication: PARKINSON^S DISEASE
     Dosage: 4 MG, THREE TIMES DAILY
     Route: 048
     Dates: start: 1999
  2. PRAVASTATIN. [Concomitant]
     Active Substance: PRAVASTATIN
     Indication: BLOOD CHOLESTEROL INCREASED
     Dosage: 10 MG, ONCE DAILY
     Route: 048
     Dates: start: 2013
  3. TAMSULOSIN [Concomitant]
     Active Substance: TAMSULOSIN
     Indication: PROSTATIC DISORDER
     Dosage: 0.4 MG, TWO TIMES DAILY
     Route: 048
     Dates: start: 2013
  4. RYTARY [Suspect]
     Active Substance: CARBIDOPA\LEVODOPA
     Indication: PARKINSON^S DISEASE
     Dosage: 36.25/145MG, FOUR CAPSULES, FOUR TIMES DAILY
     Route: 048
     Dates: end: 2017
  5. TAMSULOSIN [Concomitant]
     Active Substance: TAMSULOSIN
     Indication: URINE ABNORMALITY
  6. CARBIDOPA/LEVODOPA [Concomitant]
     Active Substance: CARBIDOPA\LEVODOPA
     Indication: PARKINSON^S DISEASE
     Dosage: 50/200 MG, TWO TABLET, ONCE DAILY
     Route: 048
     Dates: start: 201712
  7. RYTARY [Suspect]
     Active Substance: CARBIDOPA\LEVODOPA
     Dosage: 36.25/145 MG, THREE CAPSULES FOUR TIMES DAILY
     Route: 048
     Dates: start: 2018
  8. RYTARY [Suspect]
     Active Substance: CARBIDOPA\LEVODOPA
     Dosage: 61.25/245 MG, ONE CAPSULE, FOUR TIMES A DAY
     Route: 048
     Dates: start: 2018
  9. AMANTADINE. [Concomitant]
     Active Substance: AMANTADINE HYDROCHLORIDE
     Indication: PARKINSON^S DISEASE
     Dosage: 100 MG, TWO TIMES DAILY
     Route: 048
     Dates: start: 1999
  10. MIRALAX [Concomitant]
     Active Substance: POLYETHYLENE GLYCOL 3350
     Indication: CONSTIPATION
     Dosage: 17 G, ONCE DAILY
     Route: 048
     Dates: start: 2016
  11. FLUDROCORTISONE [Concomitant]
     Active Substance: FLUDROCORTISONE
     Indication: HYPOTENSION
     Dosage: 0.1 MG, ONCE DAILY
     Route: 048
     Dates: start: 2016
  12. VITAMIN B50 COMPLEX [Concomitant]
     Active Substance: BIOTIN\CALCIUM PANTOTHENATE\CHOLINE BITARTRATE\CYANOCOBALAMIN\FOLIC ACID\INOSITOL\NIACINAMIDE\PYRIDOXINE\RIBOFLAVIN\THIAMINE
     Indication: VITAMIN SUPPLEMENTATION
     Dosage: 1 TABLET, ONCE DAILY
     Route: 048
     Dates: start: 2003
  13. UVA URSI [Concomitant]
     Indication: URINE ABNORMALITY
     Dosage: 2 TABLETS, ONCE DAILY
     Route: 048
     Dates: start: 2003
  14. MIDODRINE [Concomitant]
     Active Substance: MIDODRINE
     Indication: HYPOTENSION
     Dosage: 5 MG, TWO TIMES DAILY
     Route: 048
     Dates: start: 2016
  15. MULTIPLE VITAMINS [Concomitant]
     Active Substance: VITAMINS
     Indication: VITAMIN SUPPLEMENTATION
     Dosage: 1 TABLET, TWO TIMES DAILY
     Route: 048
     Dates: start: 1990

REACTIONS (5)
  - Patella fracture [Recovering/Resolving]
  - Pain in extremity [Recovering/Resolving]
  - Tremor [Recovering/Resolving]
  - Fall [Recovering/Resolving]
  - Muscle spasms [Recovering/Resolving]

NARRATIVE: CASE EVENT DATE: 20171217
